FAERS Safety Report 5381876-0 (Version None)
Quarter: 2007Q2

REPORT INFORMATION
  Report Type: 
  Country: None (occurrence: None)
  Receive Date: 20070629
  Receipt Date: 20070212
  Transmission Date: 20071010
  Serious: No
  Sender: FDA-Public Use
  Company Number: PHEH2007US01957

PATIENT
  Age: 71 Year
  Sex: Male

DRUGS (2)
  1. EXJADE [Suspect]
     Indication: MYELODYSPLASTIC SYNDROME
     Dosage: 1750 MG, QD, ORAL : 1250 MG, QD, ORAL
     Route: 048
     Dates: start: 20070101, end: 20070201
  2. EXJADE [Suspect]
     Indication: MYELODYSPLASTIC SYNDROME
     Dosage: 1750 MG, QD, ORAL : 1250 MG, QD, ORAL
     Route: 048
     Dates: start: 20070201

REACTIONS (3)
  - BOWEL MOVEMENT IRREGULARITY [None]
  - DIARRHOEA [None]
  - RASH [None]
